FAERS Safety Report 5648448-1 (Version None)
Quarter: 2008Q1

REPORT INFORMATION
  Report Type: 
  Country: None (occurrence: None)
  Receive Date: 20080304
  Receipt Date: 20080220
  Transmission Date: 20080703
  Serious: Yes (Hospitalization)
  Sender: FDA-Public Use
  Company Number: PHHO2007NL18759

PATIENT
  Age: 28 Year
  Sex: Male
  Weight: 71 kg

DRUGS (1)
  1. EXJADE [Suspect]
     Indication: BLOOD IRON INCREASED
     Dosage: UNK, UNK
     Route: 048

REACTIONS (8)
  - ANURIA [None]
  - CALCULUS URETERIC [None]
  - ENTEROCOCCAL SEPSIS [None]
  - HAEMATURIA [None]
  - HYDRONEPHROSIS [None]
  - NEPHROLITHIASIS [None]
  - PAIN [None]
  - PYREXIA [None]
